FAERS Safety Report 5731455-8 (Version None)
Quarter: 2008Q2

REPORT INFORMATION
  Report Type: 
  Country: None (occurrence: None)
  Receive Date: 20080506
  Receipt Date: 20080424
  Transmission Date: 20081010
  Serious: Yes (Life-Threatening, Hospitalization)
  Sender: FDA-Public Use
  Company Number: 230467J07USA

PATIENT
  Age: 32 Year
  Sex: Female

DRUGS (14)
  1. REBIF [Suspect]
     Indication: MULTIPLE SCLEROSIS
     Dosage: 44 MCG, 3 IN 1 WEEKS, SUBCUTANEOUS
     Route: 058
     Dates: start: 20070914
  2. HEXAVITAMIN (KAPSOVIT) [Concomitant]
  3. METOPROLOL (METOPROLOL /00376901/) [Concomitant]
  4. OMEPRAZOLE [Concomitant]
  5. TRIAZOLAM [Concomitant]
  6. LORAZEPAM [Concomitant]
  7. CALCIUM CARBONATE (CALCIUM CARBONATE) [Concomitant]
  8. OXYCODONE HCL [Concomitant]
  9. MORPHINE SULFATE [Concomitant]
  10. NOVOLIN (INSULIN /00030501/) [Concomitant]
  11. CITALOPRAM (CITALOPRAM /00582601/) [Concomitant]
  12. NORTRIPTYLINE (NORTRIPTYLINE /00006501/) [Concomitant]
  13. GABAPENTIN [Concomitant]
  14. BACLOFEN [Concomitant]

REACTIONS (12)
  - BLOOD GLUCOSE INCREASED [None]
  - BLOOD PRESSURE FLUCTUATION [None]
  - BLOOD PRESSURE INADEQUATELY CONTROLLED [None]
  - CONDITION AGGRAVATED [None]
  - DYSPNOEA [None]
  - INJECTION SITE ERYTHEMA [None]
  - INJECTION SITE PAIN [None]
  - INJECTION SITE REACTION [None]
  - INTESTINAL OBSTRUCTION [None]
  - MULTIPLE SCLEROSIS [None]
  - OEDEMA PERIPHERAL [None]
  - THYROID DISORDER [None]
